FAERS Safety Report 5196215-8 (Version None)
Quarter: 2007Q1

REPORT INFORMATION
  Report Type: 
  Country: None (occurrence: None)
  Receive Date: 20070102
  Receipt Date: 20061221
  Transmission Date: 20070707
  Serious: Yes (Other)
  Sender: FDA-Public Use
  Company Number: JP-PFIZER INC-2006105208

PATIENT
  Sex: Female

DRUGS (8)
  1. AROMASIN [Suspect]
     Indication: BREAST CANCER
     Route: 048
     Dates: start: 20060622, end: 20060718
  2. LOXONIN [Suspect]
     Indication: HEADACHE
     Route: 048
     Dates: start: 20060711, end: 20060717
  3. MUCOSTA [Suspect]
     Indication: HEADACHE
     Route: 048
     Dates: start: 20060711, end: 20060717
  4. ADALAT [Concomitant]
     Route: 048
  5. TENORMIN [Concomitant]
     Route: 048
  6. ALFACALCIDOL [Concomitant]
     Route: 048
  7. NEUROTROPIN [Concomitant]
  8. RINLAXER [Concomitant]
     Route: 048

REACTIONS (7)
  - DIPLOPIA [None]
  - DIZZINESS [None]
  - EYELID DISORDER [None]
  - GAIT DISTURBANCE [None]
  - HEADACHE [None]
  - SWELLING [None]
  - VISUAL ACUITY REDUCED [None]
